FAERS Safety Report 5157213-3 (Version None)
Quarter: 2006Q4

REPORT INFORMATION
  Report Type: 
  Country: None (occurrence: None)
  Receive Date: 20061127
  Receipt Date: 20061114
  Transmission Date: 20070319
  Serious: Yes (Hospitalization)
  Sender: FDA-Public Use
  Company Number: PHBS2006FR17873

PATIENT
  Age: 49 Year
  Sex: Female

DRUGS (1)
  1. ALDESLEUKIN [Suspect]
     Indication: RENAL CELL CARCINOMA RECURRENT
     Dosage: 11 X 10E6 U M-2 QW3
     Route: 058

REACTIONS (5)
  - HAEMOGLOBIN DECREASED [None]
  - RED BLOOD CELL SEDIMENTATION RATE INCREASED [None]
  - SKIN HYPERTROPHY [None]
  - SYSTEMIC SCLEROSIS [None]
  - WHITE BLOOD CELL COUNT INCREASED [None]
